FAERS Safety Report 21461889 (Version 2)
Quarter: 2022Q4

REPORT INFORMATION
  Report Type: Spontaneous
  Country: US (occurrence: US)
  Receive Date: 20221015
  Receipt Date: 20221022
  Transmission Date: 20230113
  Serious: Yes (Other)
  Sender: FDA-Public Use
  Company Number: US-ABBVIE-4153830

PATIENT
  Age: 43 Year
  Sex: Female

DRUGS (2)
  1. FENOFIBRATE [Suspect]
     Active Substance: FENOFIBRATE
     Indication: Pancreatitis acute
     Route: 048
  2. ATORVASTATIN [Suspect]
     Active Substance: ATORVASTATIN
     Indication: Pancreatitis acute
     Route: 065

REACTIONS (1)
  - Drug-induced liver injury [Unknown]
